FAERS Safety Report 5551268-X (Version None)
Quarter: 2007Q4

REPORT INFORMATION
  Report Type: 
  Country: None (occurrence: None)
  Receive Date: 20071128
  Receipt Date: 20061104
  Transmission Date: 20080405
  Serious: Yes (Other)
  Sender: FDA-Public Use
  Company Number: 2006108726

PATIENT
  Age: 53 Year
  Sex: Female
  Weight: 92.0802 kg

DRUGS (4)
  1. LIPITOR [Suspect]
     Indication: BLOOD CHOLESTEROL INCREASED
     Dosage: (10 MG)
     Dates: start: 20040101, end: 20060101
  2. LIPITOR [Suspect]
     Indication: TYPE 2 DIABETES MELLITUS
     Dosage: (10 MG)
     Dates: start: 20040101, end: 20060101
  3. VALSARTAN [Concomitant]
  4. TOPROL-XL [Concomitant]

REACTIONS (1)
  - ALOPECIA [None]
